FAERS Safety Report 4285447-9 (Version None)
Quarter: 2004Q1

REPORT INFORMATION
  Report Type: 
  Country: None (occurrence: None)
  Receive Date: 20040202
  Receipt Date: 20040202
  Transmission Date: 20041129
  Serious: Yes (Hospitalization)
  Sender: FDA-Public Use
  Company Number: None

PATIENT
  Sex: Female

DRUGS (14)
  1. WARFARIN SODIUM [Suspect]
     Indication: DEEP VEIN THROMBOSIS
     Dosage: 5MG PO QD
     Route: 048
     Dates: start: 20030822, end: 20030910
  2. ASPIRIN [Concomitant]
  3. CAPTOPRIL [Concomitant]
  4. FLUCONAZOLE [Concomitant]
  5. DILTIAZEM [Concomitant]
  6. DITROPAM [Concomitant]
  7. DULCOLAX [Concomitant]
  8. KCL TAB [Concomitant]
  9. FUROSEMIDE [Concomitant]
  10. ATOVASTATIN [Concomitant]
  11. METOPROLOL [Concomitant]
  12. OXYBUTYNIN [Concomitant]
  13. APAP TAB [Concomitant]
  14. VANCOMYCIN [Concomitant]

REACTIONS (1)
  - INTERNATIONAL NORMALISED RATIO INCREASED [None]
